FAERS Safety Report 6185974-3 (Version None)
Quarter: 2009Q2

REPORT INFORMATION
  Report Type: 
  Country: None (occurrence: None)
  Receive Date: 20090511
  Receipt Date: 20080917
  Transmission Date: 20091009
  Serious: Yes (Life-Threatening, Hospitalization)
  Sender: FDA-Public Use
  Company Number: GB-B.I. PHARMACEUTICALS,INC./RIDGEFIELD-2008-UK-01503UK

PATIENT
  Sex: Male

DRUGS (5)
  1. VIRAMUNE [Suspect]
     Indication: HIV INFECTION
     Dosage: 200MG
     Route: 048
     Dates: start: 20080609, end: 20080623
  2. VIRAMUNE [Suspect]
     Dosage: 400MG
     Dates: start: 20080624, end: 20080721
  3. TRUVADA [Suspect]
     Indication: HIV TEST POSITIVE
     Dosage: 1ANZ
     Dates: start: 20080609
  4. ATONAVIR [Concomitant]
  5. TENOFOVIR [Concomitant]

REACTIONS (16)
  - BLOOD ALBUMIN DECREASED [None]
  - DRY MOUTH [None]
  - ENTEROCOCCAL INFECTION [None]
  - EXFOLIATIVE RASH [None]
  - FATIGUE [None]
  - FEELING ABNORMAL [None]
  - HEPATIC ENZYME INCREASED [None]
  - LIP EXFOLIATION [None]
  - LYMPHADENOPATHY [None]
  - MALAISE [None]
  - OEDEMA [None]
  - PYREXIA [None]
  - RASH [None]
  - RASH MACULO-PAPULAR [None]
  - STAPHYLOCOCCAL BACTERAEMIA [None]
  - TACHYCARDIA [None]
